FAERS Safety Report 7893005-X (Version None)
Quarter: 2011Q4

REPORT INFORMATION
  Report Type: 
  Country: None (occurrence: None)
  Receive Date: 20111104
  Receipt Date: 20111101
  Transmission Date: 20120403
  Serious: Yes (Hospitalization, Other)
  Sender: FDA-Public Use
  Company Number: JP-EISAI INC-E2020-09925-SPO-JP

PATIENT
  Age: 86 Year
  Sex: Female

DRUGS (3)
  1. ARICEPT [Suspect]
     Indication: DEMENTIA WITH LEWY BODIES
     Route: 048
     Dates: start: 20110809, end: 20110819
  2. ARICEPT [Suspect]
     Route: 048
     Dates: start: 20110820, end: 20110826
  3. ARICEPT [Suspect]
     Indication: DEMENTIA ALZHEIMER'S TYPE
     Route: 048
     Dates: end: 20110428

REACTIONS (4)
  - DELIRIUM [None]
  - DECREASED APPETITE [None]
  - AGITATION [None]
  - ALTERED STATE OF CONSCIOUSNESS [None]
